FAERS Safety Report 6490242-6 (Version None)
Quarter: 2009Q4

REPORT INFORMATION
  Report Type: 
  Country: None (occurrence: None)
  Receive Date: 20091211
  Receipt Date: 20091203
  Transmission Date: 20100525
  Serious: Yes (Hospitalization)
  Sender: FDA-Public Use
  Company Number: BR-ABBOTT-09P-020-0612245-00

PATIENT
  Sex: Female
  Weight: 53 kg

DRUGS (6)
  1. HUMIRA [Suspect]
     Indication: RHEUMATOID ARTHRITIS
     Route: 058
     Dates: start: 20090901, end: 20091111
  2. HUMIRA [Suspect]
     Route: 058
  3. PREDNISONE [Concomitant]
     Indication: RHEUMATOID ARTHRITIS
     Route: 048
  4. DICLOFENAC [Concomitant]
     Indication: ANTIINFLAMMATORY THERAPY
     Route: 048
  5. DIAZEPAM [Concomitant]
     Indication: PAIN
     Route: 048
  6. CIMETIDINE [Concomitant]
     Indication: GASTRIC DISORDER
     Route: 048

REACTIONS (4)
  - APPLICATION SITE PAIN [None]
  - ARTHRITIS [None]
  - NEPHROLITHIASIS [None]
  - WEIGHT DECREASED [None]
